FAERS Safety Report 6228269-1 (Version None)
Quarter: 2009Q2

REPORT INFORMATION
  Report Type: 
  Country: None (occurrence: None)
  Receive Date: 20090612
  Receipt Date: 20090604
  Transmission Date: 20091009
  Serious: Yes (Other)
  Sender: FDA-Public Use
  Company Number: PHMT2007CA01840

PATIENT
  Sex: Female

DRUGS (4)
  1. SANDOSTATIN LAR [Suspect]
     Indication: CARCINOID TUMOUR
     Dosage: 20 MG, QMO
     Route: 030
     Dates: start: 20050727
  2. ALTACE [Concomitant]
     Indication: HYPERTENSION
     Dosage: 5 MG DIE
  3. LIPITOR [Concomitant]
     Indication: HYPERCHOLESTEROLAEMIA
     Dosage: 10 MG DIE
  4. APO-FUROSEMIDE [Concomitant]
     Dosage: 10 MG DAILY

REACTIONS (26)
  - ASPIRATION [None]
  - BRAIN NEOPLASM [None]
  - BRAIN SCAN ABNORMAL [None]
  - CONDITION AGGRAVATED [None]
  - DYSPNOEA [None]
  - FACIAL PARESIS [None]
  - FATIGUE [None]
  - FLUID RETENTION [None]
  - HEMIPARESIS [None]
  - HEPATIC NEOPLASM [None]
  - HIGH FREQUENCY ABLATION [None]
  - HYPOAESTHESIA [None]
  - LETHARGY [None]
  - LIVER OPERATION [None]
  - MALIGNANT NEOPLASM PROGRESSION [None]
  - MENINGIOMA [None]
  - METASTASES TO SPINE [None]
  - NERVOUSNESS [None]
  - PAIN [None]
  - PLEURAL EFFUSION [None]
  - POST PROCEDURAL COMPLICATION [None]
  - ROAD TRAFFIC ACCIDENT [None]
  - SOMNOLENCE [None]
  - SURGERY [None]
  - UNRESPONSIVE TO STIMULI [None]
  - VOMITING [None]
